FAERS Safety Report 17822997 (Version 1)
Quarter: 2020Q2

REPORT INFORMATION
  Report Type: Spontaneous
  Country: US (occurrence: US)
  Receive Date: 20200522
  Receipt Date: 20200522
  Transmission Date: 20200714
  Serious: Yes (Other)
  Sender: FDA-Public Use
  Company Number: None

PATIENT
  Age: 74 Year
  Sex: Male
  Weight: 95 kg

DRUGS (4)
  1. REMDESIVIR. [Suspect]
     Active Substance: REMDESIVIR
     Indication: COVID-19 PNEUMONIA
     Dosage: ?          OTHER FREQUENCY:ONCE, THEN;?
     Route: 040
     Dates: start: 20200513, end: 20200513
  2. CONVALESCENT PLASMA [Concomitant]
     Active Substance: HUMAN PLASMA
     Dates: start: 20200512, end: 20200512
  3. TOCILIZUMAB OR PLACEBO TRIAL [Concomitant]
     Dates: start: 20200515, end: 20200515
  4. REMDESIVIR. [Suspect]
     Active Substance: REMDESIVIR
     Route: 042
     Dates: start: 20200514, end: 20200517

REACTIONS (4)
  - Continuous haemodiafiltration [None]
  - Thrombosis in device [None]
  - Respiratory failure [None]
  - Urine output decreased [None]

NARRATIVE: CASE EVENT DATE: 20200517
